FAERS Safety Report 16077916 (Version 6)
Quarter: 2019Q3

REPORT INFORMATION
  Report Type: Spontaneous
  Country: US (occurrence: US)
  Receive Date: 20190315
  Receipt Date: 20190918
  Transmission Date: 20191004
  Serious: No
  Sender: FDA-Public Use
  Company Number: US-PFIZER INC-2019107882

PATIENT
  Age: 69 Year
  Sex: Female
  Weight: 61 kg

DRUGS (1)
  1. IBRANCE [Suspect]
     Active Substance: PALBOCICLIB
     Indication: BREAST CANCER FEMALE
     Dosage: 125 MG, CYCLIC, (125MG PILL DAILY BY MOUTH FOR 21 DAYS THEN OFF FOR 7 DAYS)
     Route: 048

REACTIONS (2)
  - Weight increased [Unknown]
  - Memory impairment [Not Recovered/Not Resolved]
